FAERS Safety Report 19030991 (Version 1)
Quarter: 2021Q1

REPORT INFORMATION
  Report Type: Spontaneous
  Country: QA (occurrence: QA)
  Receive Date: 20210318
  Receipt Date: 20210318
  Transmission Date: 20210420
  Serious: Yes (Other)
  Sender: FDA-Public Use
  Company Number: None

PATIENT
  Age: 28 Year
  Sex: Female
  Weight: 45 kg

DRUGS (6)
  1. PRIMOLUT N [Concomitant]
     Active Substance: NORETHINDRONE
  2. RETINOL [Concomitant]
     Active Substance: RETINOL
  3. VITAMIN C [Concomitant]
     Active Substance: ASCORBIC ACID
  4. SALICYLIC ACID. [Concomitant]
     Active Substance: SALICYLIC ACID
  5. ZOCIN (AZITHROMYCIN) [Suspect]
     Active Substance: AZITHROMYCIN
     Indication: ACNE
     Dosage: ?          QUANTITY:1 CAPSULE(S);?
     Route: 048
     Dates: start: 20200910, end: 20201120
  6. MONODOKS (DOXYCYCLINE) [Suspect]
     Active Substance: DOXYCYCLINE
     Indication: ACNE
     Dosage: ?          QUANTITY:1 CAPSULE(S);?
     Route: 048
     Dates: start: 20201125, end: 20201222

REACTIONS (1)
  - Menstrual disorder [None]

NARRATIVE: CASE EVENT DATE: 20201213
